FAERS Safety Report 9537474 (Version 1)
Quarter: 2013Q3

REPORT INFORMATION
  Report Type: Report from Study
  Country: US (occurrence: US)
  Receive Date: 20130919
  Receipt Date: 20130919
  Transmission Date: 20140515
  Serious: Yes (Other)
  Sender: FDA-Public Use
  Company Number: US-JNJFOC-20130906337

PATIENT
  Sex: Male
  Weight: 72.58 kg

DRUGS (4)
  1. REMICADE [Suspect]
     Indication: PSORIATIC ARTHROPATHY
     Dosage: STARTED INFLIXIMAB ON AN UNSPECIFIED DATE IN 2013. THREE MONTS AGO
     Route: 042
     Dates: start: 2013
  2. PREDNISONE [Suspect]
     Indication: RASH
     Route: 065
     Dates: start: 2013, end: 2013
  3. ENBREL [Suspect]
     Indication: PRODUCT USED FOR UNKNOWN INDICATION
     Route: 065
  4. ALLOPURINOL [Concomitant]
     Indication: GOUT
     Dosage: FOR ABOUT 6 YEARS
     Route: 065

REACTIONS (5)
  - Red man syndrome [Recovering/Resolving]
  - Rash [Recovering/Resolving]
  - Sunburn [Recovering/Resolving]
  - Skin exfoliation [Recovering/Resolving]
  - Skin burning sensation [Recovering/Resolving]
